FAERS Safety Report 8125833-X (Version None)
Quarter: 2012Q1

REPORT INFORMATION
  Report Type: 
  Country: None (occurrence: None)
  Receive Date: 20120206
  Receipt Date: 20120125
  Transmission Date: 20120608
  Serious: Yes (Death, Hospitalization, Other)
  Sender: FDA-Public Use
  Company Number: 2011P1012427

PATIENT
  Age: 93 Year
  Sex: Female

DRUGS (3)
  1. FENTANYL [Suspect]
     Indication: AGITATION
     Dosage: 50 UG; ;IV, 25 UG;;IV, IV
     Route: 042
     Dates: start: 20110613, end: 20110613
  2. FENTANYL [Suspect]
     Indication: AGITATION
     Dosage: 50 UG; ;IV, 25 UG;;IV, IV
     Route: 042
     Dates: start: 20110613, end: 20110613
  3. FENTANYL [Suspect]
     Indication: AGITATION
     Dosage: 50 UG; ;IV, 25 UG;;IV, IV
     Route: 042
     Dates: end: 20110617

REACTIONS (16)
  - DYSPHAGIA [None]
  - DISORIENTATION [None]
  - CONVULSION [None]
  - DIZZINESS [None]
  - INCORRECT DOSE ADMINISTERED [None]
  - HYPERTENSION [None]
  - STARVATION [None]
  - FALL [None]
  - HYPOTENSION [None]
  - HAEMORRHAGE [None]
  - GENERAL PHYSICAL HEALTH DETERIORATION [None]
  - LACERATION [None]
  - OVERDOSE [None]
  - BRAIN INJURY [None]
  - MEDICATION ERROR [None]
  - MUSCULAR WEAKNESS [None]
